FAERS Safety Report 10299418 (Version 1)
Quarter: 2014Q3

REPORT INFORMATION
  Report Type: Spontaneous
  Country: US (occurrence: US)
  Receive Date: 20140711
  Receipt Date: 20140711
  Transmission Date: 20150326
  Serious: No
  Sender: FDA-Public Use
  Company Number: US-ASTRAZENECA-2014SE47862

PATIENT
  Age: 32 Year
  Sex: Female
  Weight: 70.3 kg

DRUGS (2)
  1. PULMICORT TURBUHALER [Suspect]
     Active Substance: BUDESONIDE
     Indication: BRONCHITIS
     Dosage: PULMICORT FLEXHALER 180 MCG/ 2 PUFF  TWO TIMES A DAY
     Route: 055
  2. ALBUTEROL SULFATE. [Concomitant]
     Active Substance: ALBUTEROL SULFATE
     Indication: ASTHMA
     Dosage: UNKNOWN Q4-6H
     Route: 055

REACTIONS (5)
  - Cough [Unknown]
  - Exposure during pregnancy [Unknown]
  - Intentional product misuse [Unknown]
  - Bronchitis [Unknown]
  - Circumstance or information capable of leading to medication error [Unknown]

NARRATIVE: CASE EVENT DATE: 201311
